FAERS Safety Report 22773488 (Version 6)
Quarter: 2025Q4

REPORT INFORMATION
  Report Type: Spontaneous
  Country: US (occurrence: US)
  Receive Date: 20230801
  Receipt Date: 20251013
  Transmission Date: 20260118
  Serious: Yes (Other)
  Sender: PFIZER
  Company Number: US-PFIZER INC-PV202300131044

PATIENT
  Age: 56 Year
  Sex: Female

DRUGS (5)
  1. IBRANCE [Suspect]
     Active Substance: PALBOCICLIB
     Indication: Breast cancer female
     Dosage: 100 MG
  2. IBRANCE [Suspect]
     Active Substance: PALBOCICLIB
     Indication: Lung carcinoma cell type unspecified stage 0
     Dosage: 1 PO (PER ORAL) DAILY FOR 21 DAYS ON AND 7 DAYS OFF
     Route: 048
  3. IBRANCE [Suspect]
     Active Substance: PALBOCICLIB
     Indication: Breast cancer metastatic
  4. IBRANCE [Suspect]
     Active Substance: PALBOCICLIB
     Indication: Lung adenocarcinoma
  5. EXEMESTANE [Suspect]
     Active Substance: EXEMESTANE
     Indication: Breast cancer female
     Dosage: UNK

REACTIONS (9)
  - Infection [Unknown]
  - Cytopenia [Unknown]
  - Nasopharyngitis [Unknown]
  - Illness [Unknown]
  - Brain fog [Unknown]
  - Hypersomnia [Unknown]
  - Full blood count decreased [Unknown]
  - Fatigue [Recovering/Resolving]
  - Product dispensing error [Unknown]
